FAERS Safety Report 25025952 (Version 3)
Quarter: 2025Q2

REPORT INFORMATION
  Report Type: Spontaneous
  Country: US (occurrence: US)
  Receive Date: 20250301
  Receipt Date: 20250410
  Transmission Date: 20250716
  Serious: Yes (Hospitalization, Other)
  Sender: CSL BEHRING
  Company Number: US-BEH-2025196862

PATIENT
  Age: 23 Year
  Sex: Male

DRUGS (8)
  1. IDELVION [Suspect]
     Active Substance: COAGULATION FACTOR IX RECOMBINANT HUMAN
     Indication: Factor IX deficiency
     Dosage: 6000 IU, QW, EVERY 7 DAYS AND PRN
     Route: 042
     Dates: start: 202002
  2. IDELVION [Suspect]
     Active Substance: COAGULATION FACTOR IX RECOMBINANT HUMAN
     Indication: Factor IX deficiency
     Dosage: 6000 IU, QW, EVERY 7 DAYS AND PRN
     Route: 042
     Dates: start: 202002
  3. IDELVION [Suspect]
     Active Substance: COAGULATION FACTOR IX RECOMBINANT HUMAN
     Dosage: 6000 IU, QW ((5400-6600) SLOW IV PUSH EVERY 7 DAYS)
     Route: 042
     Dates: start: 202002
  4. IDELVION [Suspect]
     Active Substance: COAGULATION FACTOR IX RECOMBINANT HUMAN
     Dosage: 6000 IU, QW ((5400-6600) SLOW IV PUSH EVERY 7 DAYS)
     Route: 042
     Dates: start: 202002
  5. IDELVION [Suspect]
     Active Substance: COAGULATION FACTOR IX RECOMBINANT HUMAN
     Indication: Factor IX deficiency
     Dosage: 6000 IU, QW, EVERY 7 DAYS AND PRN
     Route: 042
     Dates: start: 202002
  6. IDELVION [Suspect]
     Active Substance: COAGULATION FACTOR IX RECOMBINANT HUMAN
     Indication: Factor IX deficiency
     Dosage: 6000 IU, QW, EVERY 7 DAYS AND PRN
     Route: 042
     Dates: start: 202002
  7. IDELVION [Suspect]
     Active Substance: COAGULATION FACTOR IX RECOMBINANT HUMAN
     Dosage: 6000 IU, QW(5400-6600) SLOW IV PUSH EVERY 7 DAYS)
     Route: 042
     Dates: start: 202002
  8. IDELVION [Suspect]
     Active Substance: COAGULATION FACTOR IX RECOMBINANT HUMAN
     Dosage: 6000 IU, QW(5400-6600) SLOW IV PUSH EVERY 7 DAYS)
     Route: 042
     Dates: start: 202002

REACTIONS (3)
  - Migraine [Unknown]
  - Hospitalisation [Unknown]
  - Blood urine present [Unknown]

NARRATIVE: CASE EVENT DATE: 20250319
